FAERS Safety Report 23410486 (Version 2)
Quarter: 2024Q1

REPORT INFORMATION
  Report Type: Report from Study
  Country: US (occurrence: US)
  Receive Date: 20240117
  Receipt Date: 20240319
  Transmission Date: 20240409
  Serious: Yes (Other)
  Sender: FDA-Public Use
  Company Number: US-002147023-NVSC2023US255339

PATIENT
  Sex: Female

DRUGS (1)
  1. COSENTYX [Suspect]
     Active Substance: SECUKINUMAB
     Indication: Psoriasis
     Dosage: UNK
     Route: 065

REACTIONS (11)
  - Transient ischaemic attack [Unknown]
  - Rash [Unknown]
  - Sinus pain [Unknown]
  - Cholelithiasis [Unknown]
  - Endometriosis [Unknown]
  - Gait inability [Unknown]
  - Appendix disorder [Unknown]
  - Nasopharyngitis [Unknown]
  - Rhinorrhoea [Unknown]
  - Drug effect less than expected [Unknown]
  - Device leakage [Unknown]
